FAERS Safety Report 9570832 (Version 1)
Quarter: 2013Q3

REPORT INFORMATION
  Report Type: Spontaneous
  Country: US (occurrence: None)
  Receive Date: 20130926
  Receipt Date: 20130926
  Transmission Date: 20140515
  Serious: Yes (Other)
  Sender: FDA-Public Use
  Company Number: None

PATIENT
  Age: 62 Year
  Sex: Female
  Weight: 87.09 kg

DRUGS (1)
  1. COREG [Suspect]

REACTIONS (4)
  - Dizziness [None]
  - Strabismus [None]
  - Eye disorder [None]
  - Visual acuity reduced [None]
